FAERS Safety Report 7598499-5 (Version None)
Quarter: 2011Q3

REPORT INFORMATION
  Report Type: 
  Country: None (occurrence: None)
  Receive Date: 20110708
  Receipt Date: 20110705
  Transmission Date: 20111222
  Serious: Yes (Life-Threatening, Hospitalization, Other)
  Sender: FDA-Public Use
  Company Number: FR-ELI_LILLY_AND_COMPANY-FR201107000801

PATIENT
  Sex: Male

DRUGS (7)
  1. AVASTIN [Concomitant]
     Dosage: 5 MG/KG, UNK
     Dates: start: 20101223, end: 20110407
  2. CISPLATIN [Concomitant]
     Dosage: 50 MG/M2, UNK
     Dates: start: 20101223, end: 20110407
  3. MOTILIUM [Concomitant]
  4. GEMZAR [Suspect]
     Dosage: 1500 MG/M2, UNK
     Dates: start: 20101223, end: 20110407
  5. EPREX [Concomitant]
     Indication: ANAEMIA
     Dosage: 40000 IU/ML
  6. IPRATROPIUM BROMIDE [Concomitant]
  7. ACETAMINOPHEN [Concomitant]
     Dosage: 1000 MG, UNK

REACTIONS (5)
  - ACUTE CORONARY SYNDROME [None]
  - ATRIAL FIBRILLATION [None]
  - NAUSEA [None]
  - ANAEMIA [None]
  - MYOCARDIAL INFARCTION [None]
